FAERS Safety Report 5503972-7 (Version None)
Quarter: 2007Q4

REPORT INFORMATION
  Report Type: 
  Country: None (occurrence: None)
  Receive Date: 20071101
  Receipt Date: 20071017
  Transmission Date: 20080405
  Serious: Yes (Death, Life-Threatening, Hospitalization)
  Sender: FDA-Public Use
  Company Number: FR-ELI_LILLY_AND_COMPANY-FR200710004896

PATIENT
  Age: 73 Year
  Sex: Male
  Weight: 99 kg

DRUGS (8)
  1. PEMETREXED [Suspect]
     Indication: BRONCHIAL CARCINOMA
     Dosage: 500 MG/M2, OTHER
     Route: 042
     Dates: start: 20070718
  2. MONOTILDIEM [Concomitant]
     Dosage: 300 MG, DAILY (1/D)
  3. ARIXTRA [Concomitant]
     Dosage: 7.5 ML, DAILY (1/D)
     Route: 048
  4. TRIATEC [Concomitant]
     Dosage: 10 MG, DAILY (1/D)
     Route: 048
  5. ZOCOR [Concomitant]
     Dosage: 20 MG, DAILY (1/D)
     Route: 048
  6. SEROPRAM [Concomitant]
     Dosage: 1 D/F, DAILY (1/D)
     Route: 048
  7. XANAX [Concomitant]
     Dosage: 0.75 MG, DAILY (1/D)
     Route: 048
  8. IMOVANE [Concomitant]
     Dosage: 7.5 MG, DAILY (1/D)
     Route: 048

REACTIONS (3)
  - DIARRHOEA [None]
  - GENERAL PHYSICAL HEALTH DETERIORATION [None]
  - NEUTROPENIA [None]
